FAERS Safety Report 7364081-8 (Version None)
Quarter: 2011Q1

REPORT INFORMATION
  Report Type: 
  Country: None (occurrence: None)
  Receive Date: 20110321
  Receipt Date: 20110308
  Transmission Date: 20110831
  Serious: Yes (Hospitalization, Other)
  Sender: FDA-Public Use
  Company Number: PHHY2011TW19555

PATIENT
  Sex: Male
  Weight: 78.3 kg

DRUGS (1)
  1. ALISKIREN [Suspect]
     Dosage: 150 MG, UNK
     Route: 048
     Dates: start: 20101206

REACTIONS (5)
  - RENAL CYST [None]
  - CHOLECYSTITIS ACUTE [None]
  - ABDOMINAL PAIN [None]
  - CHOLECYSTITIS INFECTIVE [None]
  - DIVERTICULUM INTESTINAL [None]
